FAERS Safety Report 14554205 (Version 1)
Quarter: 2018Q1

REPORT INFORMATION
  Report Type: Spontaneous
  Country: US (occurrence: US)
  Receive Date: 20180208
  Receipt Date: 20180208
  Transmission Date: 20180509
  Serious: Yes (Hospitalization)
  Sender: FDA-Public Use
  Company Number: None

PATIENT
  Age: 63 Year
  Sex: Male
  Weight: 186 kg

DRUGS (2)
  1. LISINOPRIL. [Suspect]
     Active Substance: LISINOPRIL
     Dates: start: 20141216, end: 20150506
  2. PREGABALIN. [Suspect]
     Active Substance: PREGABALIN
     Indication: HYPERTENSION
     Route: 048
     Dates: start: 20150504, end: 20150504

REACTIONS (6)
  - Pharyngeal oedema [None]
  - Uveitis [None]
  - Dry mouth [None]
  - Dyspnoea [None]
  - Oropharyngeal pain [None]
  - Dysphonia [None]

NARRATIVE: CASE EVENT DATE: 20150504
